FAERS Safety Report 9125966 (Version 2)
Quarter: 2013Q2

REPORT INFORMATION
  Report Type: Spontaneous
  Country: BR (occurrence: BR)
  Receive Date: 20130121
  Receipt Date: 20130506
  Transmission Date: 20140414
  Serious: Yes (Other)
  Sender: FDA-Public Use
  Company Number: PHHY2012BR061013

PATIENT
  Age: 62 Year
  Sex: Female

DRUGS (4)
  1. DESERILA [Suspect]
     Indication: MIGRAINE
     Dosage: 1 DF (25 MG),  DAILY
     Route: 048
     Dates: start: 2003, end: 2012
  2. SYNTHROID [Concomitant]
     Indication: HYPOTHYROIDISM
     Dosage: 1 DF, 88 MCG, DAILY
     Route: 048
  3. PROPRANOLOL HYDROCHLORIDE (REBATEN LA) [Concomitant]
     Indication: MIGRAINE
     Dosage: 80 MG, DAILY
     Route: 048
     Dates: start: 2003
  4. TRYPTANOL//AMITRIPTYLINE HYDROCHLORIDE [Concomitant]
     Indication: MIGRAINE
     Dosage: 25 MG, DAILY
     Route: 048
     Dates: start: 2003

REACTIONS (3)
  - Depression [Not Recovered/Not Resolved]
  - Migraine [Not Recovered/Not Resolved]
  - Nervousness [Recovered/Resolved]
